FAERS Safety Report 6023200-6 (Version None)
Quarter: 2008Q4

REPORT INFORMATION
  Report Type: 
  Country: None (occurrence: None)
  Receive Date: 20081223
  Receipt Date: 20081211
  Transmission Date: 20090506
  Serious: Yes (Hospitalization)
  Sender: FDA-Public Use
  Company Number: 1000003231

PATIENT
  Sex: Female

DRUGS (3)
  1. CITALOPRAM HYDROBROMIDE [Suspect]
     Dosage: ORAL
     Route: 048
  2. NORITREN (TABLETS) [Suspect]
     Dosage: ORAL
     Route: 048
  3. ALCOHOL (LIQUID) [Suspect]
     Dosage: 1/2 - 1 1/2 BOTTLE OF WINE (2-3 TIMES A WEEK), ORAL
     Route: 048

REACTIONS (2)
  - ALCOHOL INTERACTION [None]
  - GRAND MAL CONVULSION [None]
